FAERS Safety Report 22238195 (Version 1)
Quarter: 2023Q2

REPORT INFORMATION
  Report Type: Spontaneous
  Country: US (occurrence: US)
  Receive Date: 20230421
  Receipt Date: 20230421
  Transmission Date: 20230721
  Serious: No
  Sender: FDA-Public Use
  Company Number: US-TEVA-2023-US-2874828

PATIENT
  Age: 60 Year
  Sex: Female

DRUGS (1)
  1. LORAZEPAM [Suspect]
     Active Substance: LORAZEPAM
     Indication: Chronic disease
     Dosage: UP TO THREE TIMES DAILY?2-2.5 TABLETS PER DAY
     Route: 065

REACTIONS (8)
  - Somnolence [Unknown]
  - Feeling abnormal [Unknown]
  - Fatigue [Unknown]
  - Abdominal discomfort [Unknown]
  - Adverse event [Unknown]
  - Incorrect dose administered [Unknown]
  - Incorrect route of product administration [Unknown]
  - Product taste abnormal [Unknown]
